FAERS Safety Report 4650701-5 (Version None)
Quarter: 2005Q2

REPORT INFORMATION
  Report Type: 
  Country: None (occurrence: None)
  Receive Date: 20050429
  Receipt Date: 20050420
  Transmission Date: 20051028
  Serious: Yes (Other)
  Sender: FDA-Public Use
  Company Number: 2005-04-1007

PATIENT
  Age: 26 Year
  Sex: Female
  Weight: 61.2356 kg

DRUGS (6)
  1. CLARITIN [Suspect]
     Indication: MULTIPLE ALLERGIES
     Dosage: QD ORAL
     Route: 048
  2. VITAMIN E [Concomitant]
  3. VITAMIN C [Concomitant]
  4. CRANBERRY EXTRACT [Concomitant]
  5. ORTHO EVRA [Concomitant]
  6. ALBUTEROL [Concomitant]

REACTIONS (3)
  - DIZZINESS [None]
  - HOT FLUSH [None]
  - SYNCOPE [None]
